FAERS Safety Report 25062041 (Version 1)
Quarter: 2025Q1

REPORT INFORMATION
  Report Type: Spontaneous
  Country: US (occurrence: US)
  Receive Date: 20250311
  Receipt Date: 20250311
  Transmission Date: 20250408
  Serious: Yes (Hospitalization)
  Sender: CSL BEHRING
  Company Number: US-BEH-2025197901

PATIENT
  Sex: Female

DRUGS (3)
  1. HUMATE-P [Suspect]
     Active Substance: HUMAN COAGULATION FACTOR VIII/VON WILLEBRAND FACTOR COMPLEX
     Indication: Von Willebrand^s disease
     Dosage: 3120 RCOF UNITS (2808-3432) , QD (STRENGTH REPORTED AS 2400)
     Route: 042
     Dates: start: 20250226, end: 20250302
  2. HUMATE-P [Suspect]
     Active Substance: HUMAN COAGULATION FACTOR VIII/VON WILLEBRAND FACTOR COMPLEX
     Dosage: 3120 RCOF UNITS (2808-3432) , QD (STRENGTH REPORTED AS 600)
     Route: 042
     Dates: start: 20250226
  3. HEPARIN [Concomitant]
     Active Substance: HEPARIN SODIUM

REACTIONS (1)
  - Neoplasm [Unknown]
